FAERS Safety Report 17136811 (Version 1)
Quarter: 2019Q4

REPORT INFORMATION
  Report Type: Report from Study
  Country: GB (occurrence: GB)
  Receive Date: 20191210
  Receipt Date: 20191210
  Transmission Date: 20200122
  Serious: Yes (Other)
  Sender: FDA-Public Use
  Company Number: PHHY2015GB004039

PATIENT
  Age: 37 Year
  Sex: Female

DRUGS (1)
  1. GILENYA [Suspect]
     Active Substance: FINGOLIMOD HYDROCHLORIDE
     Indication: MULTIPLE SCLEROSIS
     Dosage: UNK, QD
     Route: 048
     Dates: start: 20140407, end: 20170629

REACTIONS (13)
  - Hypoaesthesia [Unknown]
  - Salivary gland disorder [Unknown]
  - Vertigo [Unknown]
  - Paresis [Unknown]
  - Depression [Unknown]
  - Micturition urgency [Unknown]
  - Secondary progressive multiple sclerosis [Recovered/Resolved]
  - Motor dysfunction [Unknown]
  - Lymphocyte count decreased [Not Recovered/Not Resolved]
  - Nausea [Unknown]
  - Microcytic anaemia [Unknown]
  - Dizziness [Unknown]
  - Hemiparesis [Not Recovered/Not Resolved]

NARRATIVE: CASE EVENT DATE: 20141112
